FAERS Safety Report 19499183 (Version 1)
Quarter: 2021Q3

REPORT INFORMATION
  Report Type: Report from Study
  Country: None (occurrence: US)
  Receive Date: 20210707
  Receipt Date: 20210707
  Transmission Date: 20211014
  Serious: Yes (Hospitalization)
  Sender: FDA-Public Use
  Company Number: US-ABBVIE-20K-163-3695664-00

PATIENT
  Age: 52 Year
  Sex: Male

DRUGS (1)
  1. HUMIRA [Suspect]
     Active Substance: ADALIMUMAB
     Indication: HIDRADENITIS
     Dosage: CITRATE FREE
     Route: 058

REACTIONS (5)
  - Hidradenitis [Unknown]
  - Cardiac failure congestive [Unknown]
  - Pancreatitis [Unknown]
  - Abdominal pain [Unknown]
  - Acute kidney injury [Unknown]

NARRATIVE: CASE EVENT DATE: 202012
